FAERS Safety Report 14401894 (Version 1)
Quarter: 2018Q1

REPORT INFORMATION
  Report Type: Spontaneous
  Country: DE (occurrence: DE)
  Receive Date: 20180117
  Receipt Date: 20180117
  Transmission Date: 20180509
  Serious: Yes (Hospitalization)
  Sender: FDA-Public Use
  Company Number: DE-009507513-1801DEU004949

PATIENT
  Age: 71 Year
  Sex: Male
  Weight: 92 kg

DRUGS (10)
  1. SIMVASTATIN. [Concomitant]
     Active Substance: SIMVASTATIN
     Indication: HYPERCHOLESTEROLAEMIA
     Dosage: 20 MG, QD
  2. ALENDRONIC ACID [Concomitant]
     Active Substance: ALENDRONIC ACID
     Indication: OSTEOPOROSIS
     Dosage: 70 MG, QW
  3. NACOM 200 MG/50 MG RETARDTABLETTEN [Suspect]
     Active Substance: CARBIDOPA\LEVODOPA
     Indication: PARKINSON^S DISEASE
     Dosage: 250 MG, QD
  4. ASS 100 [Concomitant]
     Active Substance: ASPIRIN
     Indication: CEREBROVASCULAR ACCIDENT
  5. VITAMIN B12 RATIOPHARM [Concomitant]
     Indication: VITAMIN B1 DEFICIENCY
     Dosage: 1000 MICROGRAM, QOD
  6. BISOPROLOL FUMARATE. [Concomitant]
     Active Substance: BISOPROLOL FUMARATE
     Indication: TACHYCARDIA
     Dosage: 5 MG, QD
  7. APOMORPHINE HYDROCHLORIDE [Suspect]
     Active Substance: APOMORPHINE HYDROCHLORIDE
     Indication: PARKINSON^S DISEASE
     Dosage: DAILY DOSAGE 39MG, 9:00H-22:00H
     Route: 058
     Dates: start: 201608
  8. BENSERAZIDE HYDROCHLORIDE (+) LEVODOPA [Suspect]
     Active Substance: BENSERAZIDE\LEVODOPA
     Indication: PARKINSON^S DISEASE
     Dosage: 125 MG, Q4D
  9. CITALOPRAM [Concomitant]
     Active Substance: CITALOPRAM HYDROBROMIDE
     Indication: DEPRESSION
     Dosage: 20 MG, QD
  10. ASS 100 [Concomitant]
     Active Substance: ASPIRIN
     Indication: PROPHYLAXIS
     Dosage: 100 MG, QD

REACTIONS (4)
  - Medication error [Unknown]
  - Haematemesis [Unknown]
  - Dyskinesia [Unknown]
  - Confusional state [Unknown]

NARRATIVE: CASE EVENT DATE: 201701
